FAERS Safety Report 11186932 (Version 1)
Quarter: 2015Q2

REPORT INFORMATION
  Report Type: Spontaneous
  Country: FR (occurrence: FR)
  Receive Date: 20150615
  Receipt Date: 20150615
  Transmission Date: 20150821
  Serious: Yes (Death)
  Sender: FDA-Public Use
  Company Number: FR-ROCHE-1592707

PATIENT
  Age: 80 Year
  Sex: Female

DRUGS (11)
  1. SEROPLEX [Concomitant]
     Active Substance: ESCITALOPRAM OXALATE
     Dosage: LONG TERM TREATMENT, IN THE EVENING
     Route: 048
  2. ATARAX [Concomitant]
     Active Substance: HYDROXYZINE\HYDROXYZINE HYDROCHLORIDE
     Dosage: LONG TERM TREATMENT, AT BED TIME
     Route: 048
  3. HERCEPTIN [Suspect]
     Active Substance: TRASTUZUMAB
     Indication: INTRADUCTAL PROLIFERATIVE BREAST LESION
     Route: 042
     Dates: start: 20141002, end: 20141002
  4. BISOCE [Concomitant]
     Active Substance: BISOPROLOL
     Dosage: LONG TERM TREATMENT, IN THE MORNING
     Route: 048
  5. TAXOL [Suspect]
     Active Substance: PACLITAXEL
     Indication: INTRADUCTAL PROLIFERATIVE BREAST LESION
     Route: 042
     Dates: start: 20141002, end: 20141002
  6. KEPPRA [Concomitant]
     Active Substance: LEVETIRACETAM
     Dosage: LONG TERM TREATMENT, IN THE EVENING
     Route: 048
  7. LYSANXIA [Concomitant]
     Active Substance: PRAZEPAM
     Dosage: LONG TERM TREATMENT, IN THE EVENING
     Route: 048
  8. PLAVIX [Concomitant]
     Active Substance: CLOPIDOGREL BISULFATE
     Dosage: LONG TERM TREATMENT, IN THE EVENING
     Route: 048
  9. EXFORGE [Concomitant]
     Active Substance: AMLODIPINE BESYLATE\VALSARTAN
     Dosage: LONG TERM TREATMENT, AT LUNCH TIME
     Route: 048
  10. ACICLOVIR [Concomitant]
     Active Substance: ACYCLOVIR
     Dosage: LONG TERM TREATMENT
     Route: 065
  11. ALDACTONE [Concomitant]
     Active Substance: SPIRONOLACTONE
     Dosage: LONG TERM TREATMENT, IN THE MORNING.
     Route: 048

REACTIONS (1)
  - Lung infection [Fatal]

NARRATIVE: CASE EVENT DATE: 20141010
